FAERS Safety Report 5891922-3 (Version None)
Quarter: 2008Q3

REPORT INFORMATION
  Report Type: 
  Country: None (occurrence: None)
  Receive Date: 20080908
  Receipt Date: 20080611
  Transmission Date: 20090109
  Serious: No
  Sender: FDA-Public Use
  Company Number: 002#1#2008-00502

PATIENT
  Age: 63 Year
  Sex: Male

DRUGS (6)
  1. NEUPRO [Suspect]
     Indication: DEMENTIA
     Dosage: 2MG/24H, 1 IN 1 D, TRANSDERMAL : 4MG/24H, 1 IN 1 D, TRANSDERMAL
     Route: 062
     Dates: start: 20080213, end: 20080220
  2. NEUPRO [Suspect]
     Indication: PARKINSON'S DISEASE
     Dosage: 2MG/24H, 1 IN 1 D, TRANSDERMAL : 4MG/24H, 1 IN 1 D, TRANSDERMAL
     Route: 062
     Dates: start: 20080213, end: 20080220
  3. NEUPRO [Suspect]
     Indication: DEMENTIA
     Dosage: 2MG/24H, 1 IN 1 D, TRANSDERMAL : 4MG/24H, 1 IN 1 D, TRANSDERMAL
     Route: 062
     Dates: start: 20080221, end: 20080501
  4. NEUPRO [Suspect]
     Indication: PARKINSON'S DISEASE
     Dosage: 2MG/24H, 1 IN 1 D, TRANSDERMAL : 4MG/24H, 1 IN 1 D, TRANSDERMAL
     Route: 062
     Dates: start: 20080221, end: 20080501
  5. REQUIP [Suspect]
     Indication: PARKINSON'S DISEASE
     Dates: start: 20080501
  6. EXELON [Suspect]
     Indication: PARKINSON'S DISEASE

REACTIONS (2)
  - DEPRESSION [None]
  - PARKINSON'S DISEASE [None]
